FAERS Safety Report 4420442-8 (Version None)
Quarter: 2004Q2

REPORT INFORMATION
  Report Type: 
  Country: None (occurrence: None)
  Receive Date: 20040622
  Receipt Date: 20040204
  Transmission Date: 20050107
  Serious: Yes (Hospitalization)
  Sender: FDA-Public Use
  Company Number: US-JNJFOC-20040102747

PATIENT
  Age: 52 Year
  Sex: Female

DRUGS (6)
  1. HALDOL [Suspect]
     Indication: SCHIZOPHRENIA
     Dosage: SEE IMAGE
     Route: 030
     Dates: end: 20030601
  2. HALDOL [Suspect]
     Indication: SCHIZOPHRENIA
     Dosage: SEE IMAGE
     Route: 030
     Dates: start: 20030601, end: 20040101
  3. HALDOL [Suspect]
     Indication: SCHIZOPHRENIA
     Dosage: SEE IMAGE
     Route: 030
     Dates: start: 20040101
  4. RISPERDAL [Concomitant]
  5. COGENTIN [Concomitant]
  6. BLOOD PRESSURE MEDICATION (ANTIHYPERTENSIVES) [Concomitant]

REACTIONS (1)
  - CONDITION AGGRAVATED [None]
